FAERS Safety Report 4917201-6 (Version None)
Quarter: 2006Q1

REPORT INFORMATION
  Report Type: 
  Country: None (occurrence: None)
  Receive Date: 20060221
  Receipt Date: 20060213
  Transmission Date: 20060701
  Serious: Yes (Other)
  Sender: FDA-Public Use
  Company Number: SE-JNJFOC-20060203438

PATIENT
  Age: 58 Year
  Sex: Female

DRUGS (3)
  1. INFLIXIMAB [Suspect]
     Indication: CROHN'S DISEASE
     Route: 042
  2. CIKLOSPORIN [Concomitant]
  3. PREDNISOLONE [Concomitant]

REACTIONS (2)
  - CROHN'S DISEASE [None]
  - UTERINE CANCER [None]
